FAERS Safety Report 5736470-6 (Version None)
Quarter: 2008Q2

REPORT INFORMATION
  Report Type: 
  Country: None (occurrence: None)
  Receive Date: 20080509
  Receipt Date: 20080509
  Transmission Date: 20081010
  Serious: Yes (Death)
  Sender: FDA-Public Use
  Company Number: None

PATIENT
  Age: 73 Year
  Sex: Female
  Weight: 46.7205 kg

DRUGS (1)
  1. DIGITEK ? 0.25 ? UNKNOWN [Suspect]
     Indication: HEART RATE
     Dosage: ? 0.25 ?  PO
     Route: 048
     Dates: start: 20080301, end: 20080410

REACTIONS (1)
  - NAUSEA [None]
